FAERS Safety Report 24391307 (Version 1)
Quarter: 2024Q4

REPORT INFORMATION
  Report Type: Spontaneous
  Country: GB (occurrence: GB)
  Receive Date: 20241003
  Receipt Date: 20241003
  Transmission Date: 20250115
  Serious: Yes (Hospitalization, Other)
  Sender: HIKMA
  Company Number: GB-ROCHE-10000086816

PATIENT
  Age: 76 Year
  Sex: Female

DRUGS (2)
  1. DOCETAXEL [Suspect]
     Active Substance: DOCETAXEL
     Indication: Breast cancer
     Dosage: UNKNOWN
     Route: 065
  2. PHESGO [Suspect]
     Active Substance: HYALURONIDASE-ZZXF\PERTUZUMAB\TRASTUZUMAB
     Indication: Breast cancer
     Dosage: UNKNOWN
     Route: 065

REACTIONS (4)
  - Toxicity to various agents [Unknown]
  - Lymphadenopathy [Unknown]
  - Clostridium difficile colitis [Unknown]
  - Diarrhoea [Unknown]
